FAERS Safety Report 15776491 (Version 1)
Quarter: 2018Q4

REPORT INFORMATION
  Report Type: Spontaneous
  Country: FR (occurrence: FR)
  Receive Date: 20181231
  Receipt Date: 20181231
  Transmission Date: 20190205
  Serious: Yes (Hospitalization, Other)
  Sender: FDA-Public Use
  Company Number: FR-TEVA-2018-FR-993485

PATIENT
  Age: 9 Decade
  Sex: Male

DRUGS (4)
  1. MYCOPHENOLATE MOFETIL. [Suspect]
     Active Substance: MYCOPHENOLATE MOFETIL
     Indication: MYASTHENIA GRAVIS
     Route: 065
  2. AZATHIOPRINE. [Suspect]
     Active Substance: AZATHIOPRINE
     Indication: MYASTHENIA GRAVIS
     Dosage: WAS LATER CHANGED TO MYCOPHENOLATE MOFETIL
     Route: 065
  3. IMMUNOGLOBULIN [Concomitant]
     Indication: MYASTHENIA GRAVIS
     Route: 050
  4. PYRIDOSTIGMINE [Concomitant]
     Active Substance: PYRIDOSTIGMINE
     Indication: MYASTHENIA GRAVIS
     Route: 065

REACTIONS (4)
  - Histoplasmosis disseminated [Unknown]
  - Haemophagocytic lymphohistiocytosis [Unknown]
  - Anal ulcer [Unknown]
  - Colitis ulcerative [Unknown]
